FAERS Safety Report 6621661-2 (Version None)
Quarter: 2010Q1

REPORT INFORMATION
  Report Type: 
  Country: None (occurrence: None)
  Receive Date: 20100223
  Receipt Date: 20100119
  Transmission Date: 20100710
  Serious: No
  Sender: FDA-Public Use
  Company Number: 005119

PATIENT
  Sex: Female
  Weight: 65.8 kg

DRUGS (4)
  1. CIMZIA [Suspect]
     Indication: RHEUMATOID ARTHRITIS
     Dosage: 400 MG SUBCUTANEOUS
     Route: 058
     Dates: start: 20091012
  2. PLAQUENIL [Concomitant]
  3. CELEBREX [Concomitant]
  4. ORAL CONTRACEPTIVE NOS [Concomitant]

REACTIONS (1)
  - HYPOAESTHESIA [None]
